FAERS Safety Report 20957554 (Version 19)
Quarter: 2024Q4

REPORT INFORMATION
  Report Type: Spontaneous
  Country: US (occurrence: US)
  Receive Date: 20220614
  Receipt Date: 20241223
  Transmission Date: 20250115
  Serious: No
  Sender: PFIZER
  Company Number: US-PFIZER INC-202101134520

PATIENT
  Age: 89 Year
  Sex: Female
  Weight: 93.424 kg

DRUGS (4)
  1. BOSULIF [Suspect]
     Active Substance: BOSUTINIB MONOHYDRATE
     Indication: Leukaemia
     Dosage: 100 MG, DAILY (TAKE WHOLE WITH WATER AND FOOD 100 MG DAILY)
     Route: 048
  2. BOSULIF [Suspect]
     Active Substance: BOSUTINIB MONOHYDRATE
     Indication: Chronic myeloid leukaemia
     Dosage: 100 MG, DAILY
     Route: 048
     Dates: start: 20220126
  3. BOSULIF [Suspect]
     Active Substance: BOSUTINIB MONOHYDRATE
     Dosage: 100 MG
     Route: 048
     Dates: start: 20230224
  4. BOSULIF [Suspect]
     Active Substance: BOSUTINIB MONOHYDRATE
     Dosage: 100 MG, DAILY (TAKE WHOLE WITH WATER AND FOOD)
     Route: 048

REACTIONS (7)
  - Eye disorder [Unknown]
  - Dysphonia [Unknown]
  - Sinusitis [Unknown]
  - Illness [Unknown]
  - Bronchitis [Unknown]
  - Abdominal discomfort [Unknown]
  - Drug dispensed to wrong patient [Unknown]

NARRATIVE: CASE EVENT DATE: 20220101
